FAERS Safety Report 5884906-2 (Version None)
Quarter: 2008Q3

REPORT INFORMATION
  Report Type: 
  Country: None (occurrence: None)
  Receive Date: 20080916
  Receipt Date: 20080910
  Transmission Date: 20090109
  Serious: Yes (Congenital Anomaly)
  Sender: FDA-Public Use
  Company Number: A0681077A

PATIENT
  Sex: Female
  Weight: 3.5 kg

DRUGS (8)
  1. PAXIL [Suspect]
     Indication: DEPRESSION
     Dosage: 30MG PER DAY
     Dates: start: 19990101, end: 20000101
  2. VITAMIN TAB [Concomitant]
  3. GLUCOPHAGE [Concomitant]
     Dates: start: 19991001, end: 20000901
  4. GLUCOTROL [Concomitant]
     Dates: start: 19991001, end: 20000901
  5. HUMULIN N [Concomitant]
     Dates: start: 19990101, end: 20000801
  6. HALDOL [Concomitant]
  7. COGENTIN [Concomitant]
  8. TRAZODONE HCL [Concomitant]
     Dates: end: 20000328

REACTIONS (6)
  - ATELECTASIS [None]
  - CARDIAC FAILURE CONGESTIVE [None]
  - CARDIAC MURMUR [None]
  - DRUG EXPOSURE DURING PREGNANCY [None]
  - PATENT DUCTUS ARTERIOSUS [None]
  - VENTRICULAR SEPTAL DEFECT [None]
